FAERS Safety Report 23169959 (Version 1)
Quarter: 2023Q4

REPORT INFORMATION
  Report Type: Report from Study
  Country: ES (occurrence: ES)
  Receive Date: 20231110
  Receipt Date: 20231110
  Transmission Date: 20240110
  Serious: Yes (Hospitalization)
  Sender: FDA-Public Use
  Company Number: ES-SA-SAC20230825000352

PATIENT
  Age: 64 Year
  Sex: Female
  Weight: 54.8 kg

DRUGS (12)
  1. ISATUXIMAB [Suspect]
     Active Substance: ISATUXIMAB
     Indication: Plasma cell myeloma
     Dosage: 560 MG
     Route: 042
     Dates: start: 20230717, end: 20230717
  2. ISATUXIMAB [Suspect]
     Active Substance: ISATUXIMAB
     Dosage: 560 MG
     Route: 042
     Dates: start: 20230814, end: 20230814
  3. ISATUXIMAB [Suspect]
     Active Substance: ISATUXIMAB
     Dosage: 560 MG
     Route: 042
     Dates: start: 20230922, end: 20230922
  4. BORTEZOMIB [Suspect]
     Active Substance: BORTEZOMIB
     Indication: Plasma cell myeloma
     Dosage: 1.98 MG
     Route: 058
     Dates: start: 20230717, end: 20230717
  5. BORTEZOMIB [Suspect]
     Active Substance: BORTEZOMIB
     Dosage: 1.98 MG
     Route: 058
     Dates: start: 20230817, end: 20230817
  6. BORTEZOMIB [Suspect]
     Active Substance: BORTEZOMIB
     Dosage: 1.98 MG
     Route: 058
     Dates: start: 20230918, end: 20230918
  7. DEXAMETHASONE [Suspect]
     Active Substance: DEXAMETHASONE
     Indication: Plasma cell myeloma
     Dosage: 40 MG
     Route: 048
     Dates: start: 20230717, end: 20230717
  8. DEXAMETHASONE [Suspect]
     Active Substance: DEXAMETHASONE
     Dosage: 40 MG
     Route: 048
     Dates: start: 20230817, end: 20230817
  9. DEXAMETHASONE [Suspect]
     Active Substance: DEXAMETHASONE
     Dosage: 40 MG
     Route: 048
     Dates: start: 20230922, end: 20230922
  10. IBERDOMIDE [Suspect]
     Active Substance: IBERDOMIDE
     Indication: Plasma cell myeloma
     Dosage: 1.6 MG
     Route: 048
     Dates: start: 20230717, end: 20230717
  11. IBERDOMIDE [Suspect]
     Active Substance: IBERDOMIDE
     Dosage: 1.6 MG
     Route: 048
     Dates: start: 20230819, end: 20230819
  12. IBERDOMIDE [Suspect]
     Active Substance: IBERDOMIDE
     Dosage: 1.6 MG
     Route: 048
     Dates: start: 20230926, end: 20230926

REACTIONS (2)
  - Herpes virus infection [Recovering/Resolving]
  - Herpes simplex reactivation [Recovered/Resolved with Sequelae]

NARRATIVE: CASE EVENT DATE: 20230816
